FAERS Safety Report 9941306 (Version 1)
Quarter: 2014Q1

REPORT INFORMATION
  Report Type: Report from Study
  Country: US (occurrence: US)
  Receive Date: 20140303
  Receipt Date: 20140303
  Transmission Date: 20141002
  Serious: No
  Sender: FDA-Public Use
  Company Number: US-ABBVIE-13P-163-1042732-00

PATIENT
  Age: 77 Year
  Sex: Male

DRUGS (12)
  1. HUMIRA [Suspect]
     Indication: PSORIASIS
  2. NIASPAN (COATED) [Suspect]
     Indication: BLOOD CHOLESTEROL ABNORMAL
  3. HUMALOG [Concomitant]
     Indication: DIABETES MELLITUS
     Dosage: 75/25 TWICE DAILY
  4. METFORMIN [Concomitant]
     Indication: DIABETES MELLITUS
     Dosage: 500 MG IN THE MORNING AND 1500 MG IN THE EVENING
  5. SIMVASTATIN [Concomitant]
     Indication: PRODUCT USED FOR UNKNOWN INDICATION
     Dosage: 40 MG DAILY
  6. ATENOLOL [Concomitant]
     Indication: HEART RATE ABNORMAL
     Dosage: 25 MG DAILY
  7. ATENOLOL [Concomitant]
     Indication: PROPHYLAXIS
  8. ENALAPRIL [Concomitant]
     Indication: BLOOD CHOLESTEROL
     Dosage: 10 MG DAILY
  9. FINASTERIDE [Concomitant]
     Indication: PROSTATIC DISORDER
     Dosage: 5 MG DAILY
  10. VESICARE [Concomitant]
     Indication: BLADDER DISORDER
     Dosage: 5 MG DAILY
  11. ASPIRIN [Concomitant]
     Indication: PRODUCT USED FOR UNKNOWN INDICATION
  12. ASPIRIN [Concomitant]

REACTIONS (2)
  - Burning sensation [Unknown]
  - Hypersensitivity [Recovered/Resolved]
